FAERS Safety Report 10133942 (Version 1)
Quarter: 2014Q2

REPORT INFORMATION
  Report Type: Report from Study
  Country: ES (occurrence: ES)
  Receive Date: 20140428
  Receipt Date: 20140428
  Transmission Date: 20141212
  Serious: Yes (Other)
  Sender: FDA-Public Use
  Company Number: ES-BRISTOL-MYERS SQUIBB COMPANY-20665360

PATIENT
  Age: 13 Year
  Sex: Male

DRUGS (9)
  1. METRELEPTIN [Suspect]
     Indication: CONGENITAL GENERALISED LIPODYSTROPHY
     Route: 058
     Dates: start: 2009
  2. PREDNISONE [Concomitant]
  3. TACROLIMUS [Concomitant]
  4. CAPTOPRIL [Concomitant]
  5. METFORMIN [Concomitant]
  6. MYCOPHENOLATE MOFETIL [Concomitant]
  7. FOLIC ACID [Concomitant]
  8. SEPTRIN [Concomitant]
  9. VITAMIN E [Concomitant]

REACTIONS (4)
  - Glycosylated haemoglobin increased [Recovering/Resolving]
  - Gamma-glutamyltransferase abnormal [Recovering/Resolving]
  - Blood triglycerides abnormal [Recovering/Resolving]
  - Blood insulin abnormal [Recovering/Resolving]
